FAERS Safety Report 10225801 (Version 2)
Quarter: 2014Q2

REPORT INFORMATION
  Report Type: Spontaneous
  Country: US (occurrence: US)
  Receive Date: 20140609
  Receipt Date: 20140609
  Transmission Date: 20141212
  Serious: Yes (Hospitalization)
  Sender: FDA-Public Use
  Company Number: US-ASTELLAS-2013US006777

PATIENT
  Sex: Male

DRUGS (2)
  1. MYCOPHENOLATE [Concomitant]
     Indication: PRODUCT USED FOR UNKNOWN INDICATION
     Route: 065
     Dates: start: 201009
  2. PROGRAF [Suspect]
     Indication: RENAL AND LIVER TRANSPLANT
     Route: 048
     Dates: start: 201009

REACTIONS (1)
  - Deep vein thrombosis [Unknown]
